FAERS Safety Report 8789855 (Version 2)
Quarter: 2012Q4

REPORT INFORMATION
  Report Type: 
  Country: JP (occurrence: JP)
  Receive Date: 20120917
  Receipt Date: 20120920
  Transmission Date: 20130627
  Serious: Yes (Hospitalization)
  Sender: FDA-Public Use
  Company Number: JP-JNJFOC-20120905868

PATIENT
  Age: 76 Year
  Sex: Female

DRUGS (2)
  1. TRAMCET [Suspect]
     Indication: PAIN
     Dosage: 1 dose 1 per day
     Route: 048
     Dates: start: 20120831, end: 20120831
  2. PRIMPERAN [Concomitant]
     Indication: PROPHYLAXIS OF NAUSEA AND VOMITING
     Dosage: 1 per day
     Route: 048
     Dates: start: 20120831, end: 20120831

REACTIONS (1)
  - Vomiting [Recovered/Resolved]
